FAERS Safety Report 5837729-4 (Version None)
Quarter: 2008Q3

REPORT INFORMATION
  Report Type: 
  Country: None (occurrence: None)
  Receive Date: 20080807
  Receipt Date: 20080729
  Transmission Date: 20090109
  Serious: Yes (Hospitalization)
  Sender: FDA-Public Use
  Company Number: GB-MERCK-0806GBR00035

PATIENT
  Age: 36 Month
  Sex: Female
  Weight: 14 kg

DRUGS (3)
  1. SINGULAIR [Suspect]
     Indication: ASTHMA
     Route: 048
     Dates: start: 20070101
  2. THEOPHYLLINE [Concomitant]
     Indication: ASTHMA
     Route: 065
  3. FLUTICASONE PROPIONATE [Concomitant]
     Indication: ASTHMA
     Route: 065

REACTIONS (5)
  - ABNORMAL BEHAVIOUR [None]
  - AGGRESSION [None]
  - DYSPHEMIA [None]
  - EMOTIONAL DISORDER [None]
  - URINARY TRACT INFECTION [None]
